FAERS Safety Report 14352320 (Version 1)
Quarter: 2018Q1

REPORT INFORMATION
  Report Type: Spontaneous
  Country: CA (occurrence: CA)
  Receive Date: 20180104
  Receipt Date: 20180104
  Transmission Date: 20180509
  Serious: Yes (Other)
  Sender: FDA-Public Use
  Company Number: CA-MYLANLABS-2018M1000793

PATIENT
  Sex: Male

DRUGS (2)
  1. ACICLOVIR [Suspect]
     Active Substance: ACYCLOVIR
     Dosage: 2 DF, QD
  2. ACICLOVIR [Suspect]
     Active Substance: ACYCLOVIR
     Indication: EYE INFECTION
     Dosage: 5 DF, QD

REACTIONS (6)
  - Drug ineffective [Unknown]
  - Blindness [Not Recovered/Not Resolved]
  - Gout [Unknown]
  - Eye infection [Not Recovered/Not Resolved]
  - Condition aggravated [Not Recovered/Not Resolved]
  - Gait inability [Recovering/Resolving]
